FAERS Safety Report 11835925 (Version 1)
Quarter: 2015Q4

REPORT INFORMATION
  Report Type: Spontaneous
  Country: US (occurrence: US)
  Receive Date: 20151215
  Receipt Date: 20151215
  Transmission Date: 20160305
  Serious: No
  Sender: FDA-Public Use
  Company Number: US-ASTRAZENECA-2015SF23020

PATIENT
  Sex: Male

DRUGS (1)
  1. SYMLIN [Suspect]
     Active Substance: PRAMLINTIDE ACETATE
     Route: 058
     Dates: start: 201305

REACTIONS (2)
  - Blood glucose increased [Unknown]
  - Drug dose omission [Unknown]
